FAERS Safety Report 17636303 (Version 1)
Quarter: 2020Q2

REPORT INFORMATION
  Report Type: Spontaneous
  Country: GB (occurrence: GB)
  Receive Date: 20200407
  Receipt Date: 20200407
  Transmission Date: 20200713
  Serious: Yes (Hospitalization)
  Sender: FDA-Public Use
  Company Number: GB-TEVA-2020-GB-1220034

PATIENT
  Age: 72 Year
  Sex: Male

DRUGS (13)
  1. ATORVASTATIN [Concomitant]
     Active Substance: ATORVASTATIN
     Dosage: AT NIGHT 10 MG
     Route: 048
  2. EPHEDRINE. [Concomitant]
     Active Substance: EPHEDRINE
     Dosage: USE QDS IN BOTH NOSTRILS 8 DOSAGE FORMS
     Route: 045
  3. SODIUM CHLORIDE. [Concomitant]
     Active Substance: SODIUM CHLORIDE
     Dosage: LEFT EYE 4GTT
     Route: 061
  4. ALENDRONIC ACID [Concomitant]
     Active Substance: ALENDRONIC ACID
     Dosage: ON A MONDAY 70MG
     Route: 048
  5. CALCIUM AND COLECALCIFEROL [Concomitant]
     Dosage: COLECALCIFEROL 200UNIT / CALCIUM CARBONATE 750MG TABLETS
     Route: 048
  6. METFORMIN [Concomitant]
     Active Substance: METFORMIN HYDROCHLORIDE
     Dosage: MORNING 500 MG
     Route: 048
  7. CYCLOPENTOLATE. [Concomitant]
     Active Substance: CYCLOPENTOLATE
     Dosage: LEFT EYE
     Route: 061
  8. CHLORAMPHENICOL [Concomitant]
     Active Substance: CHLORAMPHENICOL
     Dosage: LEFT EYE AT NIGHT 1 DOSAGE FORMS
     Route: 061
  9. TAFLUPROST [Concomitant]
     Active Substance: TAFLUPROST
     Dosage: AT NIGHT INTO LEFT EYE. 15MICROGRAMS/ML 1 DOSAGE FORMS
     Route: 061
  10. SALBUTAMOL [Concomitant]
     Active Substance: ALBUTEROL
     Dosage: 1 OR 2 PUFFS 100 MICROGRAM
     Route: 050
  11. AMLODIPINE [Suspect]
     Active Substance: AMLODIPINE BESYLATE
     Dosage: MORNING 10 MG
     Route: 048
     Dates: end: 20200206
  12. TRELEGY ELLIPTA [Concomitant]
     Active Substance: FLUTICASONE FUROATE\UMECLIDINIUM BROMIDE\VILANTEROL TRIFENATATE
     Dosage: MORNING 1 DOSAGE FORMS
     Route: 050
  13. MONTELUKAST [Concomitant]
     Active Substance: MONTELUKAST SODIUM
     Dosage: NIGHT 10 MG
     Route: 048

REACTIONS (1)
  - Orthostatic hypotension [Recovering/Resolving]

NARRATIVE: CASE EVENT DATE: 20200131
